FAERS Safety Report 15593848 (Version 1)
Quarter: 2018Q4

REPORT INFORMATION
  Report Type: Report from Study
  Country: FR (occurrence: FR)
  Receive Date: 20181106
  Receipt Date: 20181106
  Transmission Date: 20190205
  Serious: Yes (Other)
  Sender: FDA-Public Use
  Company Number: FR-CHIESI USA, INC.-FR-2018CHI000477

PATIENT

DRUGS (5)
  1. GENTAMYCINE                        /00047101/ [Concomitant]
     Indication: INFECTION PROPHYLAXIS
     Dosage: 6 MG/KG, QD
     Dates: start: 20180630, end: 20180702
  2. DEXTRION G10 [Concomitant]
     Indication: PARENTERAL NUTRITION
     Dosage: 5.7 ML/H, QD
     Dates: start: 20180701
  3. CUROSURF [Suspect]
     Active Substance: PORACTANT ALFA
     Indication: NEONATAL RESPIRATORY DISTRESS SYNDROME
     Dosage: 200 MG/KG, (1X)
     Route: 007
     Dates: start: 20180701, end: 20180701
  4. ATROPINE. [Concomitant]
     Active Substance: ATROPINE
     Indication: CARDIOVASCULAR EVENT PROPHYLAXIS
     Dosage: 20 ?G/KG, QD
     Dates: start: 20180701
  5. AMOXICILLIN. [Concomitant]
     Active Substance: AMOXICILLIN
     Indication: INFECTION PROPHYLAXIS
     Dosage: 50 MG/KG, QD
     Dates: start: 20180630, end: 20180702

REACTIONS (1)
  - Endotracheal intubation complication [Recovered/Resolved]

NARRATIVE: CASE EVENT DATE: 20180701
